FAERS Safety Report 7417051-5 (Version None)
Quarter: 2011Q2

REPORT INFORMATION
  Report Type: 
  Country: None (occurrence: None)
  Receive Date: 20110415
  Receipt Date: 20090411
  Transmission Date: 20111010
  Serious: Yes (Death, Other)
  Sender: FDA-Public Use
  Company Number: US-BAYER-200917841NA

PATIENT
  Sex: Female
  Weight: 63.7 kg

DRUGS (21)
  1. TRASYLOL [Suspect]
     Indication: ATRIAL FIBRILLATION
  2. FRESH FROZEN PLASMA [Concomitant]
     Dosage: 8 UNITS
     Dates: start: 20030814
  3. COUMADIN [Concomitant]
     Dosage: 2 MG, UNK
     Route: 048
     Dates: start: 20020101
  4. TOPROL-XL [Concomitant]
     Dosage: 100 MG/MORNINGS AND 50 MG EVENINGS
     Route: 048
     Dates: start: 20020101
  5. PLATELETS [Concomitant]
     Dosage: 1 UNIT
  6. CEFUROXIME [Concomitant]
     Dosage: 1.5 GRAM
     Route: 042
     Dates: start: 20030813, end: 20030814
  7. FLUVASTATIN [Concomitant]
     Dosage: 20 MG, UNK
     Route: 048
     Dates: start: 20030813, end: 20030813
  8. MILRINONE [Concomitant]
     Dosage: 2 ML, UNK
     Route: 042
     Dates: start: 20030814
  9. ATACAND [Concomitant]
     Dosage: 16 MG, BID
     Route: 048
  10. VANCOMYCIN [Concomitant]
     Dosage: 1 G, UNK
     Route: 042
     Dates: start: 20030814, end: 20030814
  11. CEFUROXIME [Concomitant]
     Dosage: 1 G, UNK
     Route: 042
     Dates: start: 20030814, end: 20030814
  12. POTASSIUM [Concomitant]
     Dosage: 20 MG, UNK
     Route: 048
     Dates: start: 19930101
  13. TRASYLOL [Suspect]
     Indication: CARDIAC OPERATION
     Dosage: 50 ML/HOUR
     Route: 042
     Dates: start: 20030814, end: 20030814
  14. LESCOL XL [Concomitant]
     Dosage: 20 MG, UNK
     Route: 048
     Dates: start: 20010101
  15. RED BLOOD CELLS [Concomitant]
     Dosage: 2 U, UNK
  16. TRASYLOL [Suspect]
     Indication: MITRAL VALVE REPLACEMENT
  17. DIGOXIN [Concomitant]
     Dosage: 125 MCG/24HR, UNK
     Route: 048
     Dates: start: 20000101
  18. LASIX [Concomitant]
     Dosage: 20 MG, UNK
     Route: 048
  19. ALLOPURINOL [Concomitant]
     Dosage: 600 MG, UNK
     Route: 048
     Dates: start: 20030813, end: 20030814
  20. HEPARIN [Concomitant]
     Dosage: 25,000 UNITS
     Route: 042
     Dates: start: 20030814, end: 20030814
  21. PROTAMINE SULFATE [Concomitant]
     Dosage: 250 MG, UNK
     Route: 042
     Dates: start: 20030814, end: 20030814

REACTIONS (9)
  - ANXIETY [None]
  - UNEVALUABLE EVENT [None]
  - RENAL FAILURE [None]
  - FEAR [None]
  - INJURY [None]
  - ANHEDONIA [None]
  - PAIN [None]
  - DEPRESSION [None]
  - DEATH [None]
